FAERS Safety Report 18964455 (Version 4)
Quarter: 2021Q1

REPORT INFORMATION
  Report Type: Spontaneous
  Country: FR (occurrence: FR)
  Receive Date: 20210303
  Receipt Date: 20210315
  Transmission Date: 20210420
  Serious: Yes (Hospitalization, Other)
  Sender: FDA-Public Use
  Company Number: FR-PFIZER INC-2021228218

PATIENT
  Age: 51 Year
  Sex: Female
  Weight: 85 kg

DRUGS (10)
  1. PREDNISONE ARROW [Concomitant]
     Active Substance: PREDNISONE
     Dosage: 1 TABLET IN THE MORNING FOR 30 DAYS
     Route: 065
  2. RENITEC [ENALAPRIL MALEATE] [Concomitant]
     Active Substance: ENALAPRIL MALEATE
     Dosage: 1 TABLET IN THE MORNING FOR 30 DAYS
     Route: 065
  3. METOCLOPRAMIDE. [Concomitant]
     Active Substance: METOCLOPRAMIDE
     Dosage: AS NEEDED, FOR 30 DAYS
     Route: 065
  4. KALEORID LP [Concomitant]
     Active Substance: POTASSIUM CHLORIDE
     Dosage: 2 TABLETS AT NOON FOR 30 DAYS
     Route: 065
  5. LANSOPRAZOLE. [Concomitant]
     Active Substance: LANSOPRAZOLE
     Dosage: 1 TABLET IN THE EVENING FOR 30 DAYS
     Route: 065
  6. ENCORAFENIB [Suspect]
     Active Substance: ENCORAFENIB
     Indication: METASTATIC MALIGNANT MELANOMA
     Dosage: 6 TABLETS IN THE MORNING WITH BREAKFAST
     Route: 048
     Dates: start: 20210220
  7. DOLIPRANE [Concomitant]
     Active Substance: ACETAMINOPHEN
     Dosage: UNK
     Route: 065
  8. DEBRIDAT [TRIMEBUTINE MALEATE] [Concomitant]
     Active Substance: TRIMEBUTINE MALEATE
     Dosage: UNK
     Route: 065
  9. BINIMETINIB [Suspect]
     Active Substance: BINIMETINIB
     Indication: METASTATIC MALIGNANT MELANOMA
     Dosage: 3 TABLETS IN THE MORNING AND 3 TABLETS IN THE EVENING
     Route: 048
     Dates: start: 20210220
  10. PHLOROGLUCINOL [Concomitant]
     Active Substance: PHLOROGLUCINOL
     Dosage: AS NEEDED
     Route: 065

REACTIONS (8)
  - Tumour lysis syndrome [Unknown]
  - Mononeuritis [Unknown]
  - Neuritis [Recovering/Resolving]
  - Hepatocellular injury [Unknown]
  - Thrombocytosis [Unknown]
  - Acute kidney injury [Recovered/Resolved]
  - Paraesthesia [Recovered/Resolved]
  - Cholestasis [Unknown]

NARRATIVE: CASE EVENT DATE: 20210221
